FAERS Safety Report 19422466 (Version 1)
Quarter: 2021Q2

REPORT INFORMATION
  Report Type: Spontaneous
  Country: US (occurrence: US)
  Receive Date: 20210616
  Receipt Date: 20210616
  Transmission Date: 20210717
  Serious: No
  Sender: FDA-Public Use
  Company Number: None

PATIENT
  Age: 19 Year
  Sex: Female

DRUGS (1)
  1. EVEROLIMUS TAB 5MG [Suspect]
     Active Substance: EVEROLIMUS
     Route: 048
     Dates: start: 202012

REACTIONS (3)
  - Nausea [None]
  - Skin infection [None]
  - Oral mucosal blistering [None]

NARRATIVE: CASE EVENT DATE: 20210510
